FAERS Safety Report 4599791-9 (Version None)
Quarter: 2005Q1

REPORT INFORMATION
  Report Type: 
  Country: None (occurrence: None)
  Receive Date: 20050303
  Receipt Date: 20050217
  Transmission Date: 20050727
  Serious: Yes (Death)
  Sender: FDA-Public Use
  Company Number: 2005BI003747

PATIENT
  Age: 54 Year
  Sex: Female

DRUGS (1)
  1. AVONEX [Suspect]
     Indication: MULTIPLE SCLEROSIS
     Dosage: IM
     Route: 030
     Dates: start: 20000101, end: 20050101

REACTIONS (5)
  - COGNITIVE DISORDER [None]
  - CONSTIPATION [None]
  - HYPOAESTHESIA [None]
  - PARALYSIS [None]
  - URINARY TRACT INFECTION [None]
